FAERS Safety Report 4290597-7 (Version None)
Quarter: 2004Q1

REPORT INFORMATION
  Report Type: 
  Country: None (occurrence: None)
  Receive Date: 20040209
  Receipt Date: 20040129
  Transmission Date: 20041129
  Serious: Yes (Life-Threatening, Hospitalization, Disabling, Other)
  Sender: FDA-Public Use
  Company Number: US-JNJFOC-20030602288

PATIENT
  Age: 72 Year
  Sex: Female
  Weight: 73.9363 kg

DRUGS (7)
  1. REMICADE [Suspect]
     Indication: RHEUMATOID ARTHRITIS
     Dosage: INTRAVENOUS
     Route: 042
     Dates: start: 20011001, end: 20011201
  2. FOLIC ACID [Concomitant]
  3. METHOTREXATE [Concomitant]
  4. VIOXX [Concomitant]
  5. ULTRAM [Concomitant]
  6. ELAVIL [Concomitant]
  7. CELEXA [Concomitant]

REACTIONS (29)
  - ACUTE ENDOCARDITIS [None]
  - AMNESIA [None]
  - AORTIC ANEURYSM [None]
  - CERUMEN IMPACTION [None]
  - COMPUTERISED TOMOGRAM ABNORMAL [None]
  - CONDITION AGGRAVATED [None]
  - DEAFNESS [None]
  - DISSEMINATED TUBERCULOSIS [None]
  - DIZZINESS [None]
  - FALL [None]
  - GAIT DISTURBANCE [None]
  - GRAM STAIN POSITIVE [None]
  - HEPATIC ENZYME INCREASED [None]
  - INSOMNIA [None]
  - JOINT DISLOCATION [None]
  - LYMPHADENOPATHY [None]
  - MEMORY IMPAIRMENT [None]
  - MYCOTIC ANEURYSM [None]
  - NECK MASS [None]
  - NIGHT SWEATS [None]
  - NUCLEAR MAGNETIC RESONANCE IMAGING BRAIN ABNORMAL [None]
  - PAIN [None]
  - PLEURITIC PAIN [None]
  - PRURITUS [None]
  - PYREXIA [None]
  - RHEUMATOID ARTHRITIS [None]
  - SKIN LACERATION [None]
  - TENDON REPAIR [None]
  - TREMOR [None]
